FAERS Safety Report 23847354 (Version 1)
Quarter: 2024Q2

REPORT INFORMATION
  Report Type: Spontaneous
  Country: TR (occurrence: TR)
  Receive Date: 20240513
  Receipt Date: 20240513
  Transmission Date: 20240715
  Serious: Yes (Hospitalization)
  Sender: FDA-Public Use
  Company Number: TR-CHEPLA-2024005864

PATIENT
  Age: 7 Year
  Sex: Female
  Weight: 3.0999 kg

DRUGS (4)
  1. CLONAZEPAM [Suspect]
     Active Substance: CLONAZEPAM
     Indication: Anxiety
     Dosage: DAILY DOSE: 2 MILLIGRAM
  2. FLUOXETINE [Suspect]
     Active Substance: FLUOXETINE HYDROCHLORIDE
     Indication: Anxiety
     Dosage: DAILY DOSE: 40 MILLIGRAM
  3. ARIPIPRAZOLE [Concomitant]
     Active Substance: ARIPIPRAZOLE
     Indication: Anxiety
     Dosage: DAILY DOSE: 1.25 MILLIGRAM
  4. ARIPIPRAZOLE [Concomitant]
     Active Substance: ARIPIPRAZOLE
     Indication: Anxiety
     Dosage: HER ARIPIPRAZOLE TREATMENT WAS STOPPED.?DAILY DOSE: 2.5 MILLIGRAM

REACTIONS (3)
  - Sedation [Unknown]
  - Hyperventilation [Recovering/Resolving]
  - Condition aggravated [Recovering/Resolving]
